FAERS Safety Report 6686299-X (Version None)
Quarter: 2010Q2

REPORT INFORMATION
  Report Type: 
  Country: None (occurrence: None)
  Receive Date: 20100419
  Receipt Date: 20100412
  Transmission Date: 20101027
  Serious: Yes (Death)
  Sender: FDA-Public Use
  Company Number: US-PFIZER INC-2010046461

PATIENT
  Age: 52 Year
  Sex: Male

DRUGS (4)
  1. VISTARIL [Suspect]
     Indication: ANXIETY
     Dosage: 50 MG, 2X/DAY
     Route: 048
     Dates: end: 20090630
  2. LEXAPRO [Suspect]
     Indication: DEPRESSION
     Dosage: 20 MG, 1X/DAY
     Route: 048
     Dates: start: 20081201, end: 20090630
  3. LEXAPRO [Suspect]
     Indication: ANXIETY
  4. METHADONE [Concomitant]
     Indication: PAIN
     Dosage: UNK
     Dates: end: 20090201

REACTIONS (1)
  - DRUG TOXICITY [None]
